FAERS Safety Report 11400556 (Version 3)
Quarter: 2015Q4

REPORT INFORMATION
  Report Type: Spontaneous
  Country: BR (occurrence: BR)
  Receive Date: 20150820
  Receipt Date: 20151026
  Transmission Date: 20160304
  Serious: Yes (Other)
  Sender: FDA-Public Use
  Company Number: BR-PFIZER INC-2014268727

PATIENT
  Age: 67 Year
  Sex: Male
  Weight: 73 kg

DRUGS (3)
  1. SANDOSTATIN [Concomitant]
     Active Substance: OCTREOTIDE ACETATE
     Dosage: UNK
     Dates: start: 201108, end: 201410
  2. OCTREOTIDA [Concomitant]
     Indication: PANCREATIC CARCINOMA
     Dosage: UNK, MONTHLY
  3. SUTENT [Suspect]
     Active Substance: SUNITINIB MALATE
     Indication: PANCREATIC NEUROENDOCRINE TUMOUR METASTATIC
     Dosage: 37.5 MG, DAILY
     Route: 048
     Dates: start: 20140718, end: 201507

REACTIONS (23)
  - Flatulence [Not Recovered/Not Resolved]
  - Fear [Unknown]
  - Mouth injury [Recovered/Resolved]
  - Rhinalgia [Recovered/Resolved]
  - Skin atrophy [Not Recovered/Not Resolved]
  - Vision blurred [Not Recovered/Not Resolved]
  - Erythema [Not Recovered/Not Resolved]
  - Pain in extremity [Not Recovered/Not Resolved]
  - Diarrhoea [Recovered/Resolved]
  - Rhinorrhoea [Recovered/Resolved]
  - Gastric pH decreased [Not Recovered/Not Resolved]
  - Weight decreased [Recovering/Resolving]
  - Dysentery [Recovered/Resolved]
  - Gastrointestinal disorder [Not Recovered/Not Resolved]
  - Eye inflammation [Not Recovered/Not Resolved]
  - Skin discolouration [Recovered/Resolved]
  - Micturition frequency decreased [Unknown]
  - Disease progression [Recovered/Resolved]
  - Pancreatic neuroendocrine tumour metastatic [Recovered/Resolved]
  - Feeling hot [Not Recovered/Not Resolved]
  - Pallor [Not Recovered/Not Resolved]
  - Immune system disorder [Unknown]
  - Ageusia [Recovered/Resolved]

NARRATIVE: CASE EVENT DATE: 2014
